FAERS Safety Report 8251895-5 (Version None)
Quarter: 2012Q2

REPORT INFORMATION
  Report Type: 
  Country: None (occurrence: None)
  Receive Date: 20120402
  Receipt Date: 20120322
  Transmission Date: 20120825
  Serious: Yes (Hospitalization)
  Sender: FDA-Public Use
  Company Number: GB-TEVA-330686ISR

PATIENT
  Age: 70 Year
  Sex: Male

DRUGS (6)
  1. GLICLAZIDE [Concomitant]
     Route: 048
  2. SIMVASTATIN [Concomitant]
     Route: 048
  3. ATENOLOL [Concomitant]
     Route: 048
  4. TRIMETHOPRIM [Suspect]
     Indication: URINARY TRACT INFECTION
     Dosage: 600 MILLIGRAM;
     Route: 048
     Dates: start: 20120201, end: 20120301
  5. CLOPIDOGREL [Concomitant]
     Route: 048
  6. AMLODIPINE [Concomitant]
     Route: 048

REACTIONS (3)
  - HYPERKALAEMIA [None]
  - CONFUSIONAL STATE [None]
  - FALL [None]
